FAERS Safety Report 16965704 (Version 2)
Quarter: 2019Q4

REPORT INFORMATION
  Report Type: Spontaneous
  Country: FR (occurrence: FR)
  Receive Date: 20191028
  Receipt Date: 20191212
  Transmission Date: 20200122
  Serious: Yes (Other)
  Sender: FDA-Public Use
  Company Number: FR-009507513-1910FRA013636

PATIENT
  Age: 8 Year
  Sex: Male
  Weight: 45 kg

DRUGS (1)
  1. SINGULAIR [Suspect]
     Active Substance: MONTELUKAST SODIUM
     Indication: ASTHMA
     Dosage: UNKNOWN
     Route: 048
     Dates: end: 20190924

REACTIONS (5)
  - Aggression [Recovering/Resolving]
  - Somnambulism [Recovering/Resolving]
  - Nightmare [Recovering/Resolving]
  - Behaviour disorder [Recovering/Resolving]
  - Enuresis [Recovering/Resolving]

NARRATIVE: CASE EVENT DATE: 2016
